FAERS Safety Report 13664140 (Version 1)
Quarter: 2017Q2

REPORT INFORMATION
  Report Type: Spontaneous
  Country: US (occurrence: US)
  Receive Date: 20170619
  Receipt Date: 20170619
  Transmission Date: 20170830
  Serious: Yes (Death)
  Sender: FDA-Public Use
  Company Number: US-WEST-WARD PHARMACEUTICALS CORP.-US-H14001-17-01927

PATIENT

DRUGS (4)
  1. FV-100 [Suspect]
     Active Substance: VALNIVUDINE HYDROCHLORIDE
     Indication: HERPES ZOSTER
     Route: 065
  2. VALACYCLOVIR [Suspect]
     Active Substance: VALACYCLOVIR HYDROCHLORIDE
     Indication: HERPES ZOSTER
     Route: 065
  3. FV-100 [Suspect]
     Active Substance: VALNIVUDINE HYDROCHLORIDE
     Indication: PAIN
  4. VALACYCLOVIR [Suspect]
     Active Substance: VALACYCLOVIR HYDROCHLORIDE
     Indication: PAIN

REACTIONS (1)
  - Cardiac failure congestive [Fatal]
